FAERS Safety Report 12398456 (Version 4)
Quarter: 2016Q3

REPORT INFORMATION
  Report Type: Spontaneous
  Country: US (occurrence: US)
  Receive Date: 20160524
  Receipt Date: 20160726
  Transmission Date: 20161109
  Serious: No
  Sender: FDA-Public Use
  Company Number: US-ACTELION-A-US2016-135197

PATIENT
  Age: 49 Year
  Sex: Male

DRUGS (4)
  1. AMBRISENTAN [Suspect]
     Active Substance: AMBRISENTAN
     Indication: PORTOPULMONARY HYPERTENSION
     Dosage: 10 MG, QD
     Route: 065
     Dates: start: 20160307
  2. UPTRAVI [Suspect]
     Active Substance: SELEXIPAG
     Dosage: 1400 MCG, UNK
     Route: 048
  3. UPTRAVI [Suspect]
     Active Substance: SELEXIPAG
     Indication: PORTOPULMONARY HYPERTENSION
     Dosage: 1600 MCG, UNK
     Route: 048
  4. ADCIRCA [Concomitant]
     Active Substance: TADALAFIL

REACTIONS (8)
  - Paraesthesia [Unknown]
  - Insomnia [Unknown]
  - Pain in extremity [Recovered/Resolved]
  - Vomiting [Unknown]
  - Neck pain [Recovered/Resolved]
  - Diarrhoea [Recovered/Resolved]
  - Arthritis [Unknown]
  - Myalgia [Recovered/Resolved]
